FAERS Safety Report 6454302-8 (Version None)
Quarter: 2009Q4

REPORT INFORMATION
  Report Type: 
  Country: None (occurrence: None)
  Receive Date: 20091124
  Receipt Date: 20091118
  Transmission Date: 20100525
  Serious: Yes (Other)
  Sender: FDA-Public Use
  Company Number: CA-JNJFOC-20091002575

PATIENT
  Sex: Female

DRUGS (2)
  1. STELARA [Suspect]
     Indication: PSORIASIS
     Route: 058
  2. SUPEUDOL [Concomitant]
     Indication: PAIN

REACTIONS (4)
  - BEDRIDDEN [None]
  - BLISTER [None]
  - PNEUMONIA [None]
  - PSORIASIS [None]
